FAERS Safety Report 7526024-3 (Version None)
Quarter: 2011Q2

REPORT INFORMATION
  Report Type: 
  Country: None (occurrence: None)
  Receive Date: 20110606
  Receipt Date: 20110601
  Transmission Date: 20111010
  Serious: Yes (Life-Threatening, Hospitalization, Other)
  Sender: FDA-Public Use
  Company Number: US-ASTRAZENECA-2011SE20840

PATIENT
  Age: 776 Month
  Sex: Female
  Weight: 76.1 kg

DRUGS (13)
  1. PRILOSEC [Suspect]
     Route: 048
  2. PROTONIX [Concomitant]
     Route: 042
  3. XANAX [Concomitant]
     Route: 048
  4. PREVACID [Suspect]
     Route: 065
  5. VERELAN [Concomitant]
     Route: 048
  6. HYDRODIURIL [Concomitant]
     Route: 048
  7. XANAX [Concomitant]
     Dosage: 1-2 TABLET AS NEEDED
     Route: 048
  8. CALCIUM CARBONATE [Concomitant]
     Route: 048
  9. URSODIOL [Concomitant]
     Route: 048
  10. NEXIUM [Suspect]
     Indication: GASTROOESOPHAGEAL REFLUX DISEASE
     Route: 048
     Dates: start: 20100501
  11. XANAX [Concomitant]
     Dosage: 1-2 TABLET AS NEEDED
     Route: 048
  12. POTASSIUM CHLORIDE [Concomitant]
     Route: 048
  13. CLOBETASOL PROPIONATE [Concomitant]
     Dosage: FOR 2 WEEKS AND THEN WEEKENDS
     Route: 061

REACTIONS (26)
  - BILIARY CIRRHOSIS PRIMARY [None]
  - DRUG INEFFECTIVE [None]
  - OSTEOARTHRITIS [None]
  - PRURITUS [None]
  - TERMINAL STATE [None]
  - KNEE ARTHROPLASTY [None]
  - CHEST PAIN [None]
  - HYPOKALAEMIA [None]
  - SLEEP DISORDER DUE TO A GENERAL MEDICAL CONDITION [None]
  - REGURGITATION [None]
  - LIMB OPERATION [None]
  - RENAL FAILURE CHRONIC [None]
  - DRUG DOSE OMISSION [None]
  - NEOPLASM MALIGNANT [None]
  - AUTOIMMUNE HEPATITIS [None]
  - OROPHARYNGEAL PAIN [None]
  - EATING DISORDER [None]
  - VOMITING [None]
  - WEIGHT DECREASED [None]
  - MALAISE [None]
  - ACCIDENT AT WORK [None]
  - HYPERTENSION [None]
  - NON-HODGKIN'S LYMPHOMA [None]
  - ROTATOR CUFF SYNDROME [None]
  - ANXIETY [None]
  - THROMBOCYTOPENIA [None]
